FAERS Safety Report 15975199 (Version 1)
Quarter: 2019Q1

REPORT INFORMATION
  Report Type: Spontaneous
  Country: BR (occurrence: BR)
  Receive Date: 20190218
  Receipt Date: 20190218
  Transmission Date: 20190418
  Serious: Yes (Other)
  Sender: FDA-Public Use
  Company Number: BR-SA-2019SA040039

PATIENT
  Sex: Female
  Weight: 60 kg

DRUGS (1)
  1. LANTUS [Suspect]
     Active Substance: INSULIN GLARGINE
     Indication: TYPE 1 DIABETES MELLITUS
     Dosage: UNK UNK, UNK
     Dates: start: 2004

REACTIONS (3)
  - Abortion spontaneous [Unknown]
  - Complication of pregnancy [Unknown]
  - Infertility female [Unknown]
